FAERS Safety Report 8430298-4 (Version None)
Quarter: 2012Q2

REPORT INFORMATION
  Report Type: 
  Country: None (occurrence: None)
  Receive Date: 20120606
  Receipt Date: 20120606
  Transmission Date: 20120825
  Serious: Yes (Hospitalization, Other)
  Sender: FDA-Public Use
  Company Number: None

PATIENT
  Sex: Male
  Weight: 79.3795 kg

DRUGS (2)
  1. RIBAPAK 1000MG/DAY KADMON PHARMACEUTICALS [Suspect]
     Indication: HEPATITIS C
     Dosage: 1000MG DAILY PO
     Route: 048
     Dates: start: 20110914, end: 20120302
  2. INCIVEK 750MG TID [Concomitant]

REACTIONS (7)
  - ANAEMIA [None]
  - HALLUCINATION [None]
  - CONSTIPATION [None]
  - FLUID RETENTION [None]
  - ENCEPHALOPATHY [None]
  - FEELING ABNORMAL [None]
  - ABDOMINAL DISTENSION [None]
